FAERS Safety Report 7964348-6 (Version None)
Quarter: 2011Q4

REPORT INFORMATION
  Report Type: 
  Country: None (occurrence: None)
  Receive Date: 20111208
  Receipt Date: 20111128
  Transmission Date: 20120403
  Serious: Yes (Other)
  Sender: FDA-Public Use
  Company Number: US-BAYER-2011-037555

PATIENT
  Age: 40 Year
  Sex: Female
  Weight: 99.773 kg

DRUGS (3)
  1. DIFLUCAN [Concomitant]
     Indication: FUNGAL INFECTION
  2. IBUPROFEN [Concomitant]
  3. YASMIN [Suspect]
     Indication: DYSMENORRHOEA
     Dosage: UNK
     Dates: start: 20070501, end: 20080501

REACTIONS (2)
  - DEEP VEIN THROMBOSIS [None]
  - PAIN [None]
